FAERS Safety Report 6584998-1 (Version None)
Quarter: 2010Q1

REPORT INFORMATION
  Report Type: 
  Country: None (occurrence: None)
  Receive Date: 20100217
  Receipt Date: 20100209
  Transmission Date: 20100710
  Serious: Yes (Hospitalization, Disabling)
  Sender: FDA-Public Use
  Company Number: US-SANOFI-AVENTIS-200120647US

PATIENT
  Age: 42 Year
  Sex: Female
  Weight: 68.6 kg

DRUGS (7)
  1. DOCETAXEL [Suspect]
     Route: 042
     Dates: start: 19980521, end: 19980521
  2. DOCETAXEL [Suspect]
     Route: 042
     Dates: start: 19980702, end: 19980702
  3. DOXORUBICIN [Suspect]
     Route: 042
     Dates: start: 19980521, end: 19980521
  4. DOXORUBICIN [Suspect]
     Route: 042
     Dates: start: 19980824, end: 19980824
  5. CYCLOPHOSPHAMIDE [Suspect]
     Route: 042
     Dates: start: 19980521, end: 19980521
  6. CYCLOPHOSPHAMIDE [Suspect]
     Route: 042
     Dates: start: 19980824, end: 19980824
  7. TAMOXIFEN CITRATE [Suspect]
     Indication: BREAST CANCER
     Route: 048
     Dates: start: 19981202, end: 20000609

REACTIONS (5)
  - CARDIAC FAILURE CONGESTIVE [None]
  - CARDIOMYOPATHY [None]
  - ORTHOSTATIC HYPOTENSION [None]
  - TRANSIENT ISCHAEMIC ATTACK [None]
  - VENTRICULAR FIBRILLATION [None]
